FAERS Safety Report 9565165 (Version 1)
Quarter: 2013Q3

REPORT INFORMATION
  Report Type: Spontaneous
  Country: US (occurrence: US)
  Receive Date: 20130930
  Receipt Date: 20130930
  Transmission Date: 20140515
  Serious: No
  Sender: FDA-Public Use
  Company Number: US-GLAXOSMITHKLINE-A1016179A

PATIENT
  Sex: 0

DRUGS (5)
  1. RELENZA [Suspect]
     Indication: H1N1 INFLUENZA
     Dosage: 2BLS TWICE PER DAY
     Route: 055
     Dates: start: 20130315
  2. AMPHOTERICIN B [Concomitant]
  3. ACYCLOVIR [Concomitant]
  4. MEROPENEM [Concomitant]
  5. NEUPOGEN [Concomitant]

REACTIONS (3)
  - Drug administration error [Unknown]
  - Drug ineffective [Unknown]
  - Product quality issue [Unknown]
